FAERS Safety Report 10612879 (Version 2)
Quarter: 2014Q4

REPORT INFORMATION
  Report Type: Spontaneous
  Country: US (occurrence: US)
  Receive Date: 20141127
  Receipt Date: 20141127
  Transmission Date: 20150529
  Serious: Yes (Other)
  Sender: FDA-Public Use
  Company Number: US-UCBSA-2014019358

PATIENT
  Sex: Male

DRUGS (1)
  1. VIMPAT [Suspect]
     Active Substance: LACOSAMIDE
     Indication: SEIZURE
     Dosage: 200 MG/2 DAY

REACTIONS (4)
  - Memory impairment [Recovered/Resolved]
  - Headache [Recovered/Resolved]
  - Brain operation [Recovered/Resolved]
  - Seizure [Recovered/Resolved]
